FAERS Safety Report 8580351-X (Version None)
Quarter: 2012Q3

REPORT INFORMATION
  Report Type: 
  Country: None (occurrence: None)
  Receive Date: 20120808
  Receipt Date: 20120727
  Transmission Date: 20120928
  Serious: Yes (Hospitalization, Other)
  Sender: FDA-Public Use
  Company Number: US-PFIZER INC-2010088300

PATIENT
  Age: 43 Year
  Sex: Female
  Weight: 95 kg

DRUGS (16)
  1. BENTYL [Concomitant]
     Indication: COLITIS
  2. PROMETHAZINE HYDROCHLORIDE [Concomitant]
     Indication: VOMITING
  3. NEXIUM [Concomitant]
     Indication: GASTROOESOPHAGEAL REFLUX DISEASE
  4. ACETAMINOPHEN, ASPIRIN, AND CODEINE PHOSPHATE [Concomitant]
     Indication: MIGRAINE
     Dosage: UNK
  5. BENADRYL [Concomitant]
     Indication: HYPERSENSITIVITY
     Dosage: UNK
  6. BENTYL [Concomitant]
     Indication: DIVERTICULITIS
     Dosage: 10 MG, 4X/DAY
  7. BENTYL [Concomitant]
  8. NEXIUM [Concomitant]
     Indication: GASTRIC DISORDER
  9. SYMBICORT [Concomitant]
     Indication: ASTHMA
     Dosage: 160 MG/ 4.5 MCG
  10. SYMBICORT [Concomitant]
     Indication: LUNG DISORDER
  11. BENTYL [Concomitant]
     Indication: ABDOMINAL PAIN UPPER
  12. PROMETHAZINE HYDROCHLORIDE [Concomitant]
     Indication: NAUSEA
     Dosage: UNK
  13. DILANTIN-125 [Suspect]
     Dosage: 100 MG,5X/DAY
     Dates: start: 20060101, end: 20110101
  14. BENTYL [Concomitant]
     Indication: GASTROINTESTINAL DISORDER
     Dosage: 1 TO 2 MG, DAILY
     Dates: start: 20090301
  15. KLONOPIN [Suspect]
     Indication: CONVULSION
     Dosage: 2 MG, 3X/DAY
     Route: 048
     Dates: start: 20040101
  16. NEXIUM [Concomitant]
     Indication: DYSPEPSIA
     Dosage: 40 MG,DAILY
     Dates: start: 20090101

REACTIONS (9)
  - STRESS [None]
  - INFLUENZA [None]
  - ANTICONVULSANT DRUG LEVEL DECREASED [None]
  - TOXICITY TO VARIOUS AGENTS [None]
  - HEADACHE [None]
  - EMOTIONAL DISORDER [None]
  - COMA [None]
  - CONVULSION [None]
  - BRONCHITIS [None]
